FAERS Safety Report 23486900 (Version 2)
Quarter: 2024Q1

REPORT INFORMATION
  Report Type: Report from Study
  Country: US (occurrence: US)
  Receive Date: 20240206
  Receipt Date: 20240206
  Transmission Date: 20240409
  Serious: No
  Sender: FDA-Public Use
  Company Number: US-ORG100014127-2023000433

PATIENT
  Age: 77 Year
  Sex: Female

DRUGS (3)
  1. LYSODREN [Suspect]
     Active Substance: MITOTANE
     Indication: Adrenocortical carcinoma
     Dosage: 1 TABLETS PER OS QID WITH OR WITHOUT FOOD
     Route: 048
     Dates: start: 202304
  2. METHADONE [Concomitant]
     Active Substance: METHADONE HYDROCHLORIDE
     Indication: Product used for unknown indication
  3. Megestrol 625mg/5ml [Concomitant]
     Indication: Product used for unknown indication

REACTIONS (6)
  - Abdominal distension [Not Recovered/Not Resolved]
  - Weight decreased [Not Recovered/Not Resolved]
  - Back pain [Not Recovered/Not Resolved]
  - Decreased appetite [Not Recovered/Not Resolved]
  - Nausea [Not Recovered/Not Resolved]
  - Product packaging issue [Unknown]

NARRATIVE: CASE EVENT DATE: 20230401
